FAERS Safety Report 9551380 (Version 1)
Quarter: 2013Q3

REPORT INFORMATION
  Report Type: Spontaneous
  Country: US (occurrence: None)
  Receive Date: 20130724
  Receipt Date: 20130724
  Transmission Date: 20140515
  Serious: Yes (Other)
  Sender: FDA-Public Use
  Company Number: PHEH2012US011948

PATIENT
  Age: 59 Year
  Sex: Male
  Weight: 81.8 kg

DRUGS (5)
  1. GLEEVEC [Suspect]
     Indication: CHRONIC MYELOID LEUKAEMIA
     Route: 048
     Dates: start: 20120601
  2. ASA (ACETYLSALICYLIC ACID) [Concomitant]
  3. FEOSOL (FERROUS SULFATE) [Concomitant]
  4. LITHOBID (LITHIUM CARBONATE) TABLET [Concomitant]
  5. LAMICTAL (LAMOTRIGINE) TABLET [Concomitant]

REACTIONS (2)
  - Nausea [None]
  - Diarrhoea [None]
